FAERS Safety Report 12353265 (Version 9)
Quarter: 2019Q1

REPORT INFORMATION
  Report Type: Report from Study
  Country: GT (occurrence: GT)
  Receive Date: 20160510
  Receipt Date: 20190321
  Transmission Date: 20190417
  Serious: Yes (Hospitalization)
  Sender: FDA-Public Use
  Company Number: PHHY2016GT064363

PATIENT
  Age: 11 Year
  Sex: Female
  Weight: 32 kg

DRUGS (10)
  1. CARBAMAZEPINE. [Suspect]
     Active Substance: CARBAMAZEPINE
     Indication: PAIN
     Dosage: OCCASIONALLY
     Route: 065
  2. EXJADE [Suspect]
     Active Substance: DEFERASIROX
     Indication: THALASSAEMIA
     Dosage: 30 MG/KG, QD (2 DF: 500 MG, DAILY)
     Route: 048
     Dates: start: 201510, end: 201609
  3. PROPANOLOL [Concomitant]
     Active Substance: PROPRANOLOL HYDROCHLORIDE
     Indication: HEADACHE
     Route: 065
  4. DESLORATADINE. [Concomitant]
     Active Substance: DESLORATADINE
     Indication: PRODUCT USED FOR UNKNOWN INDICATION
     Route: 065
  5. NEXIUM I.V. [Concomitant]
     Active Substance: ESOMEPRAZOLE SODIUM
     Indication: ABDOMINAL PAIN UPPER
     Route: 065
  6. EXJADE [Suspect]
     Active Substance: DEFERASIROX
     Indication: SICKLE CELL ANAEMIA
     Dosage: 1 DF, UNK
     Route: 065
  7. FOLIC ACID. [Concomitant]
     Active Substance: FOLIC ACID
     Indication: PRODUCT USED FOR UNKNOWN INDICATION
     Route: 065
  8. NEXIUM I.V. [Concomitant]
     Active Substance: ESOMEPRAZOLE SODIUM
     Indication: NAUSEA
  9. ACECLOFENACO [Concomitant]
     Active Substance: ACECLOFENAC
     Indication: HEADACHE
     Dosage: 100 MG, BID
     Route: 048
  10. ACECLOFENACO [Concomitant]
     Active Substance: ACECLOFENAC
     Indication: PAIN IN EXTREMITY

REACTIONS (25)
  - Haemoptysis [Recovered/Resolved]
  - Haemoglobin decreased [Recovered/Resolved]
  - Anaemia [Recovering/Resolving]
  - Pain in extremity [Unknown]
  - Leukocytosis [Recovering/Resolving]
  - Respiratory disorder [Unknown]
  - Feeling abnormal [Unknown]
  - Epistaxis [Recovered/Resolved]
  - General physical health deterioration [Unknown]
  - Cardiomegaly [Recovered/Resolved]
  - Gait inability [Unknown]
  - Arthralgia [Not Recovered/Not Resolved]
  - Oxygen saturation decreased [Recovered/Resolved]
  - Dizziness [Not Recovered/Not Resolved]
  - Infection [Unknown]
  - Headache [Unknown]
  - Haemolysis [Recovered/Resolved]
  - Nausea [Unknown]
  - Constipation [Unknown]
  - Pneumonia [Recovered/Resolved]
  - Abdominal pain upper [Unknown]
  - Pain [Not Recovered/Not Resolved]
  - Chest pain [Recovered/Resolved]
  - Cyanosis [Recovered/Resolved]
  - Dyspnoea [Recovered/Resolved]

NARRATIVE: CASE EVENT DATE: 2015
